FAERS Safety Report 4467329-2 (Version None)
Quarter: 2004Q4

REPORT INFORMATION
  Report Type: 
  Country: None (occurrence: None)
  Receive Date: 20041004
  Receipt Date: 20040920
  Transmission Date: 20050328
  Serious: Yes (Hospitalization)
  Sender: FDA-Public Use
  Company Number: US-2004-029357

PATIENT
  Age: 44 Year
  Sex: Female
  Weight: 78.5 kg

DRUGS (3)
  1. BETASERON [Suspect]
     Indication: MULTIPLE SCLEROSIS
     Dosage: 8 MIU, EVERY 2D, SUBCUTANEOUS
     Route: 058
     Dates: start: 20020123, end: 20040610
  2. LIDEX [Concomitant]
  3. CIPRO [Concomitant]

REACTIONS (9)
  - BACK PAIN [None]
  - CYSTITIS [None]
  - DEEP VEIN THROMBOSIS [None]
  - POSTOPERATIVE INFECTION [None]
  - PROTEIN S DECREASED [None]
  - PROTEIN S DEFICIENCY [None]
  - THROMBOSIS [None]
  - VENOUS INSUFFICIENCY [None]
  - WEIGHT DECREASED [None]
